FAERS Safety Report 7493649-3 (Version None)
Quarter: 2011Q2

REPORT INFORMATION
  Report Type: 
  Country: None (occurrence: None)
  Receive Date: 20110519
  Receipt Date: 20110519
  Transmission Date: 20111010
  Serious: Yes (Hospitalization)
  Sender: FDA-Public Use
  Company Number: None

PATIENT
  Sex: Male
  Weight: 63.5036 kg

DRUGS (5)
  1. SUNITINIB MALATE [Suspect]
     Indication: BRAIN NEOPLASM MALIGNANT
     Dosage: 50 MG, DAILY, ORAL
     Route: 048
     Dates: start: 20101209, end: 20101222
  2. ATIVAN [Concomitant]
  3. KEPPRA [Concomitant]
  4. RADIATION [Concomitant]
  5. DECADRON [Concomitant]

REACTIONS (3)
  - CEREBROVASCULAR ACCIDENT [None]
  - HEMIPARESIS [None]
  - APHASIA [None]
